FAERS Safety Report 10205440 (Version 2)
Quarter: 2014Q2

REPORT INFORMATION
  Report Type: Report from Study
  Country: DE (occurrence: DE)
  Receive Date: 20140529
  Receipt Date: 20140529
  Transmission Date: 20141212
  Serious: Yes (Hospitalization)
  Sender: FDA-Public Use
  Company Number: PHHO2014DE002329

PATIENT
  Sex: 0

DRUGS (4)
  1. EVEROLIMUS [Suspect]
     Indication: RENAL TRANSPLANT
     Dosage: 1.25 MG, BID
     Route: 048
     Dates: start: 20140106, end: 20140324
  2. PREDNISON [Suspect]
     Dosage: 7.5 MG, QD
     Route: 048
     Dates: start: 20140106
  3. SANDIMMUN [Suspect]
     Indication: RENAL TRANSPLANT
     Dosage: 75 MG, BID  (75 MG/50 MG)
     Route: 048
     Dates: start: 20140106, end: 20140225
  4. SIMULECT [Suspect]
     Indication: RENAL TRANSPLANT
     Dosage: 20 MG, ONCE/SINGLE
     Route: 042
     Dates: start: 20140109, end: 20140113

REACTIONS (3)
  - Infection [Recovered/Resolved]
  - Benign prostatic hyperplasia [Unknown]
  - Lymphocele [Recovered/Resolved]
